FAERS Safety Report 4343153-6 (Version None)
Quarter: 2004Q2

REPORT INFORMATION
  Report Type: 
  Country: None (occurrence: None)
  Receive Date: 20040414
  Receipt Date: 20040325
  Transmission Date: 20050107
  Serious: Yes (Hospitalization, Other)
  Sender: FDA-Public Use
  Company Number: 222853

PATIENT
  Age: 67 Year
  Sex: Female
  Weight: 80 kg

DRUGS (7)
  1. NOVOSEVEN [Suspect]
     Indication: CEREBRAL HAEMORRHAGE
     Dosage: 40 UG/KG, SINGLE, INTRAVENOUS
     Route: 042
     Dates: start: 20021128, end: 20021128
  2. EBRANTIL (URAPIDIL) [Concomitant]
  3. ISOPTIN [Concomitant]
  4. DIGOXIN [Concomitant]
  5. BAYOTENSIN (NITRENDIPINE) [Concomitant]
  6. KALINOR (POTASSIUM CHLORIDE) [Concomitant]
  7. DELIX PLUS (HYDROCHLOROTHIAZIDE, RAMIPRIL) [Concomitant]

REACTIONS (3)
  - BRAIN OEDEMA [None]
  - CEREBRAL HAEMATOMA [None]
  - CEREBRAL INFARCTION [None]
